FAERS Safety Report 9171137 (Version 1)
Quarter: 2013Q1

REPORT INFORMATION
  Report Type: Spontaneous
  Country: US (occurrence: None)
  Receive Date: 20130312
  Receipt Date: 20130312
  Transmission Date: 20140127
  Serious: Yes (Hospitalization)
  Sender: FDA-Public Use
  Company Number: 146279

PATIENT
  Age: 44 Year
  Sex: Female

DRUGS (1)
  1. CYTARABINE [Suspect]
     Dosage: 22.68 G TOTAL; IV

REACTIONS (5)
  - Pleural effusion [None]
  - Lung infection [None]
  - Toxicity to various agents [None]
  - Pneumothorax [None]
  - Pneumonia [None]
